FAERS Safety Report 24810500 (Version 1)
Quarter: 2025Q1

REPORT INFORMATION
  Report Type: Spontaneous
  Country: CN (occurrence: CN)
  Receive Date: 20250106
  Receipt Date: 20250106
  Transmission Date: 20250408
  Serious: Yes (Hospitalization)
  Sender: PFIZER
  Company Number: CN-PFIZER INC-PV202500000288

PATIENT
  Age: 66 Year
  Sex: Male
  Weight: 66 kg

DRUGS (2)
  1. LINEZOLID [Suspect]
     Active Substance: LINEZOLID
     Indication: Bacterial infection
     Dosage: 0.6 G, 2X/DAY
     Route: 041
     Dates: start: 20241217, end: 20241221
  2. LINEZOLID [Suspect]
     Active Substance: LINEZOLID
     Indication: Haematological infection

REACTIONS (2)
  - Diarrhoea [Recovering/Resolving]
  - Faeces soft [Unknown]

NARRATIVE: CASE EVENT DATE: 20241219
